FAERS Safety Report 8067879-6 (Version None)
Quarter: 2012Q1

REPORT INFORMATION
  Report Type: 
  Country: None (occurrence: None)
  Receive Date: 20120124
  Receipt Date: 20110830
  Transmission Date: 20120608
  Serious: No
  Sender: FDA-Public Use
  Company Number: US-AMGEN-USASP2011044309

PATIENT
  Age: 82 Year
  Sex: Female

DRUGS (4)
  1. VITAMIN D                          /00318501/ [Concomitant]
  2. PROLIA [Suspect]
     Indication: OSTEOPOROSIS POSTMENOPAUSAL
     Dosage: 60 MG, Q6MO
     Dates: start: 20110324, end: 20110101
  3. CALCIUM [Concomitant]
     Dosage: UNK
  4. SERTRALINE HYDROCHLORIDE [Concomitant]

REACTIONS (4)
  - GAIT DISTURBANCE [None]
  - DIZZINESS [None]
  - CYSTITIS [None]
  - TREMOR [None]
